FAERS Safety Report 9364960 (Version 3)
Quarter: 2014Q1

REPORT INFORMATION
  Report Type: Spontaneous
  Country: US (occurrence: US)
  Receive Date: 20130624
  Receipt Date: 20140116
  Transmission Date: 20141002
  Serious: Yes (Hospitalization)
  Sender: FDA-Public Use
  Company Number: US-B.I. PHARMACEUTICALS,INC./RIDGEFIELD-2013-BI-17552BP

PATIENT
  Age: 69 Year
  Sex: Male
  Weight: 90.72 kg

DRUGS (8)
  1. PRADAXA [Suspect]
     Indication: ANTICOAGULANT THERAPY
     Dosage: 300 MG
     Dates: start: 20111231, end: 20120621
  2. PRADAXA [Suspect]
     Indication: ATRIAL FIBRILLATION
  3. GLIMEPIRIDE [Concomitant]
     Dates: start: 2006
  4. METFORMIN [Concomitant]
     Dates: start: 2007
  5. SIMVASTATIN [Concomitant]
     Dates: start: 2008
  6. LISINOPRIL [Concomitant]
     Dates: start: 2007
  7. AMLODIPINE BESYLATE [Concomitant]
     Dates: start: 2007
  8. ASPIRIN [Concomitant]
     Dosage: 325 MG

REACTIONS (2)
  - Gastrointestinal haemorrhage [Recovered/Resolved]
  - Anaemia [Unknown]
